FAERS Safety Report 6011929-5 (Version None)
Quarter: 2008Q4

REPORT INFORMATION
  Report Type: 
  Country: None (occurrence: None)
  Receive Date: 20081218
  Receipt Date: 20081006
  Transmission Date: 20090506
  Serious: No
  Sender: FDA-Public Use
  Company Number: US-ASTRAZENECA-2008UW21739

PATIENT
  Age: 69 Year
  Sex: Female
  Weight: 68 kg

DRUGS (3)
  1. CRESTOR [Suspect]
     Indication: BLOOD CHOLESTEROL INCREASED
     Route: 048
     Dates: start: 20050101
  2. CRESTOR [Suspect]
     Route: 048
     Dates: start: 20080915
  3. AVAPRO [Concomitant]

REACTIONS (3)
  - DRUG DISPENSING ERROR [None]
  - FATIGUE [None]
  - HOT FLUSH [None]
